FAERS Safety Report 11509938 (Version 1)
Quarter: 2015Q3

REPORT INFORMATION
  Report Type: Spontaneous
  Country: US (occurrence: US)
  Receive Date: 20150915
  Receipt Date: 20150915
  Transmission Date: 20151125
  Serious: No
  Sender: FDA-Public Use
  Company Number: US-JNJFOC-20150804597

PATIENT
  Age: 33 Year
  Sex: Female
  Weight: 48.99 kg

DRUGS (1)
  1. SUDAFED [Suspect]
     Active Substance: PSEUDOEPHEDRINE HYDROCHLORIDE
     Indication: NASOPHARYNGITIS
     Dosage: ONE TIME
     Route: 048
     Dates: start: 1986

REACTIONS (2)
  - Heart rate increased [Recovered/Resolved]
  - Exposure during pregnancy [Unknown]
